FAERS Safety Report 16654790 (Version 3)
Quarter: 2019Q3

REPORT INFORMATION
  Report Type: Spontaneous
  Country: CA (occurrence: CA)
  Receive Date: 20190801
  Receipt Date: 20190923
  Transmission Date: 20191004
  Serious: Yes (Other)
  Sender: FDA-Public Use
  Company Number: CA-AUROBINDO-AUR-APL-2019-043905

PATIENT
  Age: 60 Year
  Sex: Male

DRUGS (19)
  1. CLOBAZAM. [Suspect]
     Active Substance: CLOBAZAM
     Indication: EPILEPSY
     Dosage: 10 MILLIGRAM, TWO TIMES A DAY
     Route: 065
  2. LEVETIRACETAM TABLET [Suspect]
     Active Substance: LEVETIRACETAM
     Indication: SEIZURE
     Dosage: 1500 MILLIGRAM, TWO TIMES A DAY
     Route: 065
  3. MIDAZOLAM [Suspect]
     Active Substance: MIDAZOLAM HYDROCHLORIDE
     Indication: STATUS EPILEPTICUS
     Dosage: 30 MILLIGRAM, 1 EVERY 1 HOUR
     Route: 042
  4. CLOBAZAM. [Suspect]
     Active Substance: CLOBAZAM
     Indication: CEREBRAL PALSY
  5. LEVETIRACETAM TABLET [Suspect]
     Active Substance: LEVETIRACETAM
     Indication: STATUS EPILEPTICUS
     Dosage: 1500 MILLIGRAM, TWO TIMES A DAY
     Route: 042
  6. PHENYTOIN. [Suspect]
     Active Substance: PHENYTOIN
     Indication: EPILEPSY
     Dosage: 150 MILLIGRAM, 3 TIMES A DAY
     Route: 065
  7. PROPOFOL. [Suspect]
     Active Substance: PROPOFOL
     Indication: STATUS EPILEPTICUS
     Dosage: 50 MICROGRAM/KILOGRAM, 1 EVERY 1 MINUTE
     Route: 065
  8. LEVOFLOXACIN. [Concomitant]
     Active Substance: LEVOFLOXACIN
     Indication: PRODUCT USED FOR UNKNOWN INDICATION
     Dosage: UNK
     Route: 065
  9. PHENYTOIN. [Suspect]
     Active Substance: PHENYTOIN
     Indication: STATUS EPILEPTICUS
     Dosage: UNK
     Route: 042
  10. PHENYTOIN. [Suspect]
     Active Substance: PHENYTOIN
     Indication: SEIZURE
     Dosage: UNK
     Route: 065
  11. MIDAZOLAM [Suspect]
     Active Substance: MIDAZOLAM HYDROCHLORIDE
     Dosage: 30 MILLIGRAM, 1 EVERY 1 HOUR (S)
     Route: 041
  12. PMS PROPOFOL [Suspect]
     Active Substance: PROPOFOL
     Indication: SEIZURE
     Dosage: 50 MILLIGRAM/KILOGRAM, 1 EVERY 1 MINUTE
     Route: 041
  13. KETAMINE HYDROCHLORIDE. [Suspect]
     Active Substance: KETAMINE HYDROCHLORIDE
     Dosage: 40 MILLIGRAM, EVERY HOUR
     Route: 042
  14. KETAMINE HYDROCHLORIDE. [Suspect]
     Active Substance: KETAMINE HYDROCHLORIDE
     Indication: SEIZURE
     Dosage: 220 MILLIGRAM, EVERY HOUR
     Route: 041
  15. KETAMINE HYDROCHLORIDE. [Suspect]
     Active Substance: KETAMINE HYDROCHLORIDE
     Dosage: 50 MILLIGRAM
     Route: 040
  16. PHENYTOIN. [Suspect]
     Active Substance: PHENYTOIN
     Dosage: 250 MILLIGRAM, ONCE A DAY
     Route: 065
  17. PHENYTOIN. [Suspect]
     Active Substance: PHENYTOIN
     Indication: CEREBRAL PALSY
     Dosage: 450 MILLIGRAM, ONCE A DAY
     Route: 065
  18. MIDAZOLAM [Suspect]
     Active Substance: MIDAZOLAM HYDROCHLORIDE
     Indication: SEIZURE
     Dosage: 5 MILLIGRAM, AS REQUIRED
     Route: 040
  19. PMS PROPOFOL [Suspect]
     Active Substance: PROPOFOL
     Dosage: 30 MILLIGRAM, AS REQUIRED
     Route: 040

REACTIONS (2)
  - Hypotension [Recovered/Resolved]
  - Drug ineffective [Recovered/Resolved]
